FAERS Safety Report 8022901-8 (Version None)
Quarter: 2012Q1

REPORT INFORMATION
  Report Type: 
  Country: None (occurrence: None)
  Receive Date: 20120104
  Receipt Date: 20111230
  Transmission Date: 20120608
  Serious: Yes (Hospitalization, Other)
  Sender: FDA-Public Use
  Company Number: DE-ELI_LILLY_AND_COMPANY-DE201112003642

PATIENT
  Age: 62 Year
  Sex: Female
  Weight: 80 kg

DRUGS (5)
  1. EFFIENT [Suspect]
     Dosage: 10 MG, UNK
     Route: 048
  2. RAMIPRIL [Concomitant]
     Dosage: 5 MG, QD
     Route: 048
  3. ACETYLSALICYLIC ACID SRT [Concomitant]
     Dosage: 100 MG, QD
     Route: 048
  4. EFFIENT [Suspect]
     Indication: ACUTE CORONARY SYNDROME
     Dosage: 60 MG, LOADING DOSE
     Dates: start: 20111210
  5. NEBIVOLOL HCL [Concomitant]
     Dosage: 2.5 MG, QD
     Route: 048

REACTIONS (1)
  - STENT EMBOLISATION [None]
